FAERS Safety Report 8773820 (Version 3)
Quarter: 2013Q3

REPORT INFORMATION
  Report Type: Report from Study
  Country: AU (occurrence: AU)
  Receive Date: 20120907
  Receipt Date: 20130820
  Transmission Date: 20140515
  Serious: Yes (Hospitalization)
  Sender: FDA-Public Use
  Company Number: AU-ROCHE-1051644

PATIENT
  Age: 74 Year
  Sex: Female

DRUGS (22)
  1. TOCILIZUMAB [Suspect]
     Indication: RHEUMATOID ARTHRITIS
     Route: 042
     Dates: start: 20111005
  2. TOCILIZUMAB [Suspect]
     Route: 042
     Dates: start: 20111015
  3. AVAPRO [Concomitant]
     Indication: BLOOD PRESSURE
     Route: 048
  4. AVAPRO [Concomitant]
     Indication: HYPERTENSION
  5. DIAFORMIN [Concomitant]
     Indication: DIABETES MELLITUS
     Route: 048
  6. DIAFORMIN [Concomitant]
     Route: 048
  7. ZOCOR [Concomitant]
     Indication: BLOOD CHOLESTEROL
     Route: 048
  8. SOMAC (AUSTRALIA) [Concomitant]
     Dosage: DAILY
     Route: 048
  9. ARAVA [Concomitant]
     Indication: ARTHRALGIA
     Route: 048
  10. ARAVA [Concomitant]
     Indication: RHEUMATOID ARTHRITIS
     Route: 048
  11. GLICLAZIDE [Concomitant]
  12. JANUVIA [Concomitant]
  13. TRAMAL [Concomitant]
     Indication: NEURALGIA
  14. LASIX [Concomitant]
     Indication: FLUID RETENTION
     Route: 048
     Dates: start: 20120727
  15. VITAMIN B12 [Concomitant]
  16. NEURONTIN [Concomitant]
  17. NORSPAN [Concomitant]
  18. SPIROTONE [Concomitant]
     Indication: FLUID RETENTION
     Dosage: DAILY
     Route: 048
     Dates: start: 20120727
  19. DIAFORMIN [Concomitant]
     Indication: DIABETES MELLITUS
     Route: 048
     Dates: start: 20120727
  20. MORPHINE [Concomitant]
     Dosage: PATCH
     Route: 065
  21. NOTEN [Concomitant]
  22. TRACLEER [Concomitant]
     Indication: PULMONARY HYPERTENSION
     Route: 048

REACTIONS (4)
  - Skin infection [Unknown]
  - Blister [Not Recovered/Not Resolved]
  - Skin ulcer [Not Recovered/Not Resolved]
  - Skin ulcer [Not Recovered/Not Resolved]
